FAERS Safety Report 20051516 (Version 1)
Quarter: 2021Q4

REPORT INFORMATION
  Report Type: Spontaneous
  Country: ES (occurrence: ES)
  Receive Date: 20211110
  Receipt Date: 20211110
  Transmission Date: 20220303
  Serious: Yes (Other)
  Sender: FDA-Public Use
  Company Number: ES-BAUSCH-BL-2021-036855

PATIENT
  Age: 66 Year
  Sex: Female

DRUGS (4)
  1. TIMOLOL [Suspect]
     Active Substance: TIMOLOL
     Indication: Open angle glaucoma
     Route: 065
  2. LATANOPROST [Suspect]
     Active Substance: LATANOPROST
     Indication: Open angle glaucoma
     Route: 065
  3. TRAVOPROST [Suspect]
     Active Substance: TRAVOPROST
     Indication: Open angle glaucoma
     Route: 065
  4. BRINZOLAMIDE [Suspect]
     Active Substance: BRINZOLAMIDE
     Indication: Open angle glaucoma
     Route: 065

REACTIONS (1)
  - Ulcerative keratitis [Recovering/Resolving]
